FAERS Safety Report 21586240 (Version 1)
Quarter: 2022Q4

REPORT INFORMATION
  Report Type: Spontaneous
  Country: US (occurrence: US)
  Receive Date: 20221112
  Receipt Date: 20221112
  Transmission Date: 20230112
  Serious: Yes (Death, Other)
  Sender: FDA-Public Use
  Company Number: US-AMGEN-USASP2022189918

PATIENT

DRUGS (11)
  1. RITUXIMAB [Suspect]
     Active Substance: RITUXIMAB
     Indication: Ischaemic stroke
     Dosage: UNK
     Route: 065
  2. RITUXIMAB [Suspect]
     Active Substance: RITUXIMAB
     Indication: Neurosarcoidosis
  3. RITUXIMAB [Suspect]
     Active Substance: RITUXIMAB
     Indication: Off label use
  4. INFLIXIMAB [Suspect]
     Active Substance: INFLIXIMAB
     Indication: Ischaemic stroke
     Dosage: UNK
     Route: 065
  5. INFLIXIMAB [Suspect]
     Active Substance: INFLIXIMAB
     Indication: Neurosarcoidosis
  6. INFLIXIMAB [Suspect]
     Active Substance: INFLIXIMAB
     Indication: Off label use
  7. AZATHIOPRINE [Concomitant]
     Active Substance: AZATHIOPRINE
     Indication: Product used for unknown indication
     Dosage: UNK
     Route: 065
  8. CYCLOPHOSPHAMIDE [Concomitant]
     Active Substance: CYCLOPHOSPHAMIDE
     Indication: Product used for unknown indication
     Dosage: UNK
     Route: 065
  9. MYCOPHENOLATE MOFETIL [Concomitant]
     Active Substance: MYCOPHENOLATE MOFETIL
     Indication: Product used for unknown indication
     Route: 065
  10. METHOTREXATE [Concomitant]
     Active Substance: METHOTREXATE
     Indication: Product used for unknown indication
     Dosage: UNK
     Route: 065
  11. TOCILIZUMAB [Concomitant]
     Active Substance: TOCILIZUMAB
     Indication: Product used for unknown indication
     Dosage: UNK
     Route: 065

REACTIONS (12)
  - Death [Fatal]
  - Neurosarcoidosis [Fatal]
  - Metastases to meninges [Unknown]
  - Ischaemic stroke [Unknown]
  - Cerebrovascular accident [Unknown]
  - Chondritis [Unknown]
  - Adverse reaction [Unknown]
  - Treatment failure [Unknown]
  - Infusion related reaction [Unknown]
  - Off label use [Unknown]
  - Vasculitis [Unknown]
  - Drug effective for unapproved indication [Unknown]
